FAERS Safety Report 20291141 (Version 1)
Quarter: 2022Q1

REPORT INFORMATION
  Report Type: Report from Study
  Country: US (occurrence: US)
  Receive Date: 20220104
  Receipt Date: 20220104
  Transmission Date: 20220423
  Serious: Yes (Other)
  Sender: FDA-Public Use
  Company Number: US-PFIZER INC-202101861285

PATIENT

DRUGS (1)
  1. SIROLIMUS [Suspect]
     Active Substance: SIROLIMUS
     Indication: Sturge-Weber syndrome
     Dosage: UNK, 2X/DAY
     Route: 048

REACTIONS (4)
  - Seizure [Unknown]
  - Behaviour disorder [Unknown]
  - Aggression [Unknown]
  - Stomatitis [Unknown]
